FAERS Safety Report 20361331 (Version 1)
Quarter: 2022Q1

REPORT INFORMATION
  Report Type: Spontaneous
  Country: US (occurrence: US)
  Receive Date: 20220121
  Receipt Date: 20220121
  Transmission Date: 20220423
  Serious: Yes (Other)
  Sender: FDA-Public Use
  Company Number: US-ALEMBIC PHARMACUETICALS LIMITED-2021SCAL000549

PATIENT

DRUGS (2)
  1. BIMATOPROST [Suspect]
     Active Substance: BIMATOPROST
     Indication: Madarosis
     Dosage: 1 DROP. 1 DROP PER EYE LID
     Route: 061
     Dates: end: 20211121
  2. BIMATOPROST [Suspect]
     Active Substance: BIMATOPROST
     Dosage: 1 DROP. 1 DROP PER EYE LID
     Route: 061
     Dates: end: 20211208

REACTIONS (4)
  - Eye swelling [Recovered/Resolved]
  - Eye infection [Recovered/Resolved]
  - Erythema of eyelid [Recovered/Resolved]
  - Eye irritation [Recovered/Resolved]

NARRATIVE: CASE EVENT DATE: 20211112
